FAERS Safety Report 5096332-7 (Version None)
Quarter: 2006Q3

REPORT INFORMATION
  Report Type: 
  Country: None (occurrence: None)
  Receive Date: 20060905
  Receipt Date: 20060829
  Transmission Date: 20061208
  Serious: Yes (Other)
  Sender: FDA-Public Use
  Company Number: 2006AC01586

PATIENT
  Age: 4 Year
  Sex: Male

DRUGS (1)
  1. EMLA [Suspect]
     Dosage: 30 G TUBE APPLIED
     Route: 061

REACTIONS (5)
  - CYANOSIS [None]
  - DEPRESSED LEVEL OF CONSCIOUSNESS [None]
  - METHAEMOGLOBINAEMIA [None]
  - OVERDOSE [None]
  - RESPIRATORY DISTRESS [None]
